FAERS Safety Report 23021315 (Version 2)
Quarter: 2023Q4

REPORT INFORMATION
  Report Type: Spontaneous
  Country: US (occurrence: US)
  Receive Date: 20231003
  Receipt Date: 20231211
  Transmission Date: 20240110
  Serious: Yes (Other)
  Sender: FDA-Public Use
  Company Number: US-JNJFOC-20230953857

PATIENT
  Age: 6 Decade
  Sex: Female

DRUGS (1)
  1. TALQUETAMAB [Suspect]
     Active Substance: TALQUETAMAB
     Indication: Product used for unknown indication
     Route: 065

REACTIONS (3)
  - Cardiac failure acute [Recovering/Resolving]
  - Acute pulmonary oedema [Recovering/Resolving]
  - Pyrexia [Recovering/Resolving]
